FAERS Safety Report 5724400-2 (Version None)
Quarter: 2008Q2

REPORT INFORMATION
  Report Type: 
  Country: None (occurrence: None)
  Receive Date: 20080429
  Receipt Date: 20070124
  Transmission Date: 20081010
  Serious: Yes (Hospitalization, Other)
  Sender: FDA-Public Use
  Company Number: WAES 0612TWN0008

PATIENT
  Age: 79 Year
  Sex: Female

DRUGS (20)
  1. INJ CASPOFUNGIN ACETATE [Suspect]
     Indication: CANDIDIASIS
     Dosage: IV
     Route: 042
     Dates: start: 20061123, end: 20061216
  2. ACETAMINOPHEN [Concomitant]
  3. AMLODIPINE BESYLATE [Concomitant]
  4. ANTIMICROBIAL [Concomitant]
  5. AZTREONAM [Concomitant]
  6. CEFTAZIDIME [Concomitant]
  7. CIPROFLOXACIN HYDROCHLORIDE [Concomitant]
  8. FAMOTIDINE [Concomitant]
  9. FENTANYL CITRATE [Concomitant]
  10. FLUCONAZOLE [Concomitant]
  11. FLUOXETINE HCL [Concomitant]
  12. IPRATROPIUM BROMIDE [Concomitant]
  13. METHYLPREDNISOLONE [Concomitant]
  14. METRONIDAZOLE HCL [Concomitant]
  15. NICARDIPINE HCL [Concomitant]
  16. PIPERACILLIN SODIUM (+) TAZOBACTAM SODIU [Concomitant]
  17. SULFAMETHOXAZOLE/TRIMETHROPRIM [Concomitant]
  18. TERBUTALINE SULFATE [Concomitant]
  19. TRANEXAMIC ACID [Concomitant]
  20. VANCOMYCIN [Concomitant]

REACTIONS (17)
  - ABDOMINAL INFECTION [None]
  - ALANINE AMINOTRANSFERASE INCREASED [None]
  - ASCITES [None]
  - ASPARTATE AMINOTRANSFERASE INCREASED [None]
  - BILIRUBIN CONJUGATED INCREASED [None]
  - BLOOD ALKALINE PHOSPHATASE INCREASED [None]
  - BLOOD LACTATE DEHYDROGENASE INCREASED [None]
  - ENTEROCOCCAL BACTERAEMIA [None]
  - HYPERBILIRUBINAEMIA [None]
  - JAUNDICE [None]
  - MULTIPLE-DRUG RESISTANCE [None]
  - PERITONITIS [None]
  - PLEURAL EFFUSION [None]
  - POSTOPERATIVE WOUND INFECTION [None]
  - STAPHYLOCOCCAL BACTERAEMIA [None]
  - STAPHYLOCOCCAL INFECTION [None]
  - STENOTROPHOMONAS INFECTION [None]
